FAERS Safety Report 4996422-0 (Version None)
Quarter: 2006Q2

REPORT INFORMATION
  Report Type: 
  Country: None (occurrence: None)
  Receive Date: 20060505
  Receipt Date: 20060426
  Transmission Date: 20061013
  Serious: Yes (Other)
  Sender: FDA-Public Use
  Company Number: 2006057434

PATIENT
  Age: 50 Year
  Sex: Female

DRUGS (2)
  1. LYRICA [Suspect]
     Indication: PAIN
     Dosage: 75 MG, ORAL
     Route: 048
     Dates: start: 20051207, end: 20051201
  2. NORTRIPTYLINE HCL [Concomitant]

REACTIONS (7)
  - CRYING [None]
  - DEPRESSION [None]
  - HYPERHIDROSIS [None]
  - OEDEMA MOUTH [None]
  - RASH [None]
  - SWELLING FACE [None]
  - SYNCOPE [None]
